FAERS Safety Report 8106181-0 (Version None)
Quarter: 2012Q1

REPORT INFORMATION
  Report Type: 
  Country: None (occurrence: None)
  Receive Date: 20120130
  Receipt Date: 20120116
  Transmission Date: 20120608
  Serious: Yes (Death)
  Sender: FDA-Public Use
  Company Number: 2012POI058000004

PATIENT
  Age: 7 Year
  Sex: Male

DRUGS (1)
  1. OXYCODONE HCL [Suspect]
     Dosage: PER ORAL
     Route: 048
     Dates: end: 20100101

REACTIONS (26)
  - WHITE BLOOD CELL COUNT INCREASED [None]
  - BLOOD PRESSURE IMMEASURABLE [None]
  - PULMONARY OEDEMA [None]
  - ACCIDENTAL DEATH [None]
  - PUPIL FIXED [None]
  - BLOOD BICARBONATE DECREASED [None]
  - BLOOD ALKALINE PHOSPHATASE INCREASED [None]
  - BASE EXCESS DECREASED [None]
  - PNEUMONIA ASPIRATION [None]
  - TOXICITY TO VARIOUS AGENTS [None]
  - PULSE ABSENT [None]
  - UNRESPONSIVE TO STIMULI [None]
  - ASPARTATE AMINOTRANSFERASE INCREASED [None]
  - DIZZINESS [None]
  - NO THERAPEUTIC RESPONSE [None]
  - PROTHROMBIN TIME PROLONGED [None]
  - BLOOD CALCIUM DECREASED [None]
  - GENERAL PHYSICAL HEALTH DETERIORATION [None]
  - DRUG ADMINISTERED TO PATIENT OF INAPPROPRIATE AGE [None]
  - ACTIVATED PARTIAL THROMBOPLASTIN TIME PROLONGED [None]
  - BLOOD CHLORIDE INCREASED [None]
  - PULMONARY CONGESTION [None]
  - RESPIRATORY ARREST [None]
  - BLOOD PHOSPHORUS INCREASED [None]
  - BLOOD GLUCOSE INCREASED [None]
  - ALANINE AMINOTRANSFERASE INCREASED [None]
